FAERS Safety Report 16521362 (Version 6)
Quarter: 2019Q4

REPORT INFORMATION
  Report Type: Report from Study
  Country: US (occurrence: US)
  Receive Date: 20190702
  Receipt Date: 20191020
  Transmission Date: 20200122
  Serious: Yes (Hospitalization)
  Sender: FDA-Public Use
  Company Number: PHEH2019US027146

PATIENT
  Age: 39 Year
  Sex: Female
  Weight: 80.73 kg

DRUGS (3)
  1. TREPROSTINIL. [Suspect]
     Active Substance: TREPROSTINIL
     Indication: PULMONARY ARTERIAL HYPERTENSION
     Dosage: 73 NG/KG/MIN
     Route: 042
     Dates: start: 20190424
  2. OPSUMIT [Concomitant]
     Active Substance: MACITENTAN
     Indication: PRODUCT USED FOR UNKNOWN INDICATION
     Route: 065
  3. TADALAFIL. [Concomitant]
     Active Substance: TADALAFIL
     Indication: PRODUCT USED FOR UNKNOWN INDICATION
     Route: 065

REACTIONS (6)
  - Hyperhidrosis [Unknown]
  - Fluid overload [Unknown]
  - Infusion site erythema [Unknown]
  - Catheter site vesicles [Unknown]
  - Vascular device infection [Unknown]
  - Chest pain [Unknown]

NARRATIVE: CASE EVENT DATE: 20190910
